FAERS Safety Report 9724839 (Version 1)
Quarter: 2013Q4

REPORT INFORMATION
  Report Type: Spontaneous
  Country: US (occurrence: US)
  Receive Date: 20131202
  Receipt Date: 20131202
  Transmission Date: 20140711
  Serious: Yes (Hospitalization)
  Sender: FDA-Public Use
  Company Number: US-TEVA-447303USA

PATIENT
  Age: 38 Year
  Sex: Male

DRUGS (2)
  1. BENZATROPINE [Suspect]
     Indication: TREMOR
     Dates: start: 201308, end: 20130920
  2. COPAXONE [Concomitant]
     Indication: MULTIPLE SCLEROSIS
     Dates: start: 20120413

REACTIONS (3)
  - Fall [Recovering/Resolving]
  - Bedridden [Recovering/Resolving]
  - Drug hypersensitivity [Recovering/Resolving]
